FAERS Safety Report 4320231-9 (Version None)
Quarter: 2004Q1

REPORT INFORMATION
  Report Type: 
  Country: None (occurrence: None)
  Receive Date: 20040317
  Receipt Date: 20040305
  Transmission Date: 20041129
  Serious: Yes (Life-Threatening)
  Sender: FDA-Public Use
  Company Number: JP-JNJFOC-20040301449

PATIENT
  Age: 64 Year
  Sex: Female

DRUGS (10)
  1. FENTANYL [Suspect]
     Indication: CANCER PAIN
     Dosage: 2.5 MG, 1 IN 3 DAY, TRANSDERMAL : 5 MG, 1 IN 3 DAY, TRANSDERMAL
     Route: 062
     Dates: start: 20040207, end: 20040213
  2. FENTANYL [Suspect]
     Indication: CANCER PAIN
     Dosage: 2.5 MG, 1 IN 3 DAY, TRANSDERMAL : 5 MG, 1 IN 3 DAY, TRANSDERMAL
     Route: 062
     Dates: start: 20040213
  3. LOXOPROFEN SODIUM [Concomitant]
  4. REBAMIPIDE [Concomitant]
  5. MAGNESIUM OXIDE [Concomitant]
  6. MOSAPRIDE CITRATE [Concomitant]
  7. MORPHINE [Concomitant]
  8. CARBOPLATIN [Concomitant]
  9. PACLITAXEL [Concomitant]
  10. NAPROXEN [Concomitant]

REACTIONS (6)
  - AMNESIA [None]
  - BLOOD PRESSURE DECREASED [None]
  - DYSPNOEA [None]
  - PNEUMONIA [None]
  - SHOCK [None]
  - WHITE BLOOD CELL COUNT [None]
